FAERS Safety Report 24249873 (Version 1)
Quarter: 2024Q3

REPORT INFORMATION
  Report Type: Spontaneous
  Country: US (occurrence: US)
  Receive Date: 20240826
  Receipt Date: 20240826
  Transmission Date: 20241016
  Serious: No
  Sender: SANOFI AVENTIS
  Company Number: US-SA-SAC20240820001096

PATIENT
  Age: 47 Year
  Sex: Male

DRUGS (11)
  1. DUPIXENT [Suspect]
     Active Substance: DUPILUMAB
     Indication: Dermatitis
     Dosage: 600 MG, 1X
     Route: 058
     Dates: start: 20240814, end: 20240814
  2. ALLOPURINOL [Concomitant]
     Active Substance: ALLOPURINOL
  3. CALCITONIN [Concomitant]
     Active Substance: CALCITONIN
  4. FLUCONAZOLE [Concomitant]
     Active Substance: FLUCONAZOLE
  5. KERENDIA [Concomitant]
     Active Substance: FINERENONE
  6. MYRBETRIQ [Concomitant]
     Active Substance: MIRABEGRON
  7. NYSTATIN [Concomitant]
     Active Substance: NYSTATIN
  8. PREDNISONE [Concomitant]
     Active Substance: PREDNISONE
  9. VITAMIN D3 [Concomitant]
     Active Substance: CHOLECALCIFEROL
  10. NYSTATIN [Concomitant]
     Active Substance: NYSTATIN
  11. MYCOPHENOLATE MOFETIL HYDROCHLORIDE [Concomitant]
     Active Substance: MYCOPHENOLATE MOFETIL HYDROCHLORIDE
     Indication: Dermatitis atopic

REACTIONS (7)
  - Anxiety [Unknown]
  - Sleep disorder due to a general medical condition [Unknown]
  - Skin fissures [Unknown]
  - Affective disorder [Unknown]
  - Skin exfoliation [Unknown]
  - Pruritus [Unknown]
  - Product use in unapproved indication [Unknown]

NARRATIVE: CASE EVENT DATE: 20240801
